FAERS Safety Report 5337970-3 (Version None)
Quarter: 2007Q2

REPORT INFORMATION
  Report Type: 
  Country: None (occurrence: None)
  Receive Date: 20070327
  Receipt Date: 20070124
  Transmission Date: 20071010
  Serious: Yes (Other)
  Sender: FDA-Public Use
  Company Number: 232406

PATIENT
  Age: 62 Year
  Sex: Male
  Weight: 107.5 kg

DRUGS (4)
  1. AVASTIN [Suspect]
     Indication: COLON CANCER
     Dosage: 600, Q2W, INTRAVENOUS
     Route: 042
     Dates: start: 20040201
  2. LOVENOX [Concomitant]
  3. WARFARIN SODIUM [Concomitant]
  4. DILTIAZEM HCL [Concomitant]

REACTIONS (1)
  - PROTEINURIA [None]
